FAERS Safety Report 14928265 (Version 1)
Quarter: 2018Q2

REPORT INFORMATION
  Report Type: Spontaneous
  Country: US (occurrence: US)
  Receive Date: 20180523
  Receipt Date: 20180523
  Transmission Date: 20180711
  Serious: No
  Sender: FDA-Public Use
  Company Number: US-MYLANLABS-2018M1030801

PATIENT
  Age: 27 Year
  Sex: Male

DRUGS (1)
  1. AMNESTEEM [Suspect]
     Active Substance: ISOTRETINOIN
     Indication: ACNE
     Dosage: 80 MG, UNK
     Route: 048

REACTIONS (2)
  - Erythema [Not Recovered/Not Resolved]
  - Urethritis noninfective [Not Recovered/Not Resolved]

NARRATIVE: CASE EVENT DATE: 20180429
